FAERS Safety Report 17429459 (Version 1)
Quarter: 2020Q1

REPORT INFORMATION
  Report Type: Spontaneous
  Country: US (occurrence: US)
  Receive Date: 20200203
  Receipt Date: 20200203
  Transmission Date: 20200409
  Serious: Yes (Disabling, Other)
  Sender: FDA-Public Use
  Company Number: None

PATIENT
  Age: 70 Year
  Sex: Male
  Weight: 99.79 kg

DRUGS (1)
  1. VALSARTAN. [Suspect]
     Active Substance: VALSARTAN
     Indication: HYPERTENSION
     Dosage: ?          OTHER DOSE:1;?
     Dates: start: 20180515, end: 20180713

REACTIONS (5)
  - Arthralgia [None]
  - Headache [None]
  - Musculoskeletal pain [None]
  - Peripheral swelling [None]
  - Muscle spasms [None]

NARRATIVE: CASE EVENT DATE: 20180505
